FAERS Safety Report 6883712-X (Version None)
Quarter: 2010Q3

REPORT INFORMATION
  Report Type: 
  Country: None (occurrence: None)
  Receive Date: 20100729
  Receipt Date: 20100726
  Transmission Date: 20110219
  Serious: Yes (Congenital Anomaly)
  Sender: FDA-Public Use
  Company Number: A0872377A

PATIENT
  Sex: Male
  Weight: 2.9 kg

DRUGS (3)
  1. EPIVIR [Suspect]
     Indication: HIV INFECTION
     Dates: start: 20040122, end: 20040123
  2. VIREAD [Suspect]
     Indication: HIV INFECTION
     Dates: start: 20040122, end: 20040123
  3. METRONIDAZOLE [Concomitant]

REACTIONS (4)
  - APLASIA [None]
  - CONGENITAL SKIN DISORDER [None]
  - DRUG EXPOSURE DURING PREGNANCY [None]
  - UMBILICAL HERNIA [None]
